FAERS Safety Report 14510499 (Version 6)
Quarter: 2018Q2

REPORT INFORMATION
  Report Type: Other
  Country: GB (occurrence: GR)
  Receive Date: 20180209
  Receipt Date: 20180406
  Transmission Date: 20180711
  Serious: Yes (Hospitalization, Other)
  Sender: FDA-Public Use
  Company Number: GB-DIMETHAID UK LIMITED-DIM-001076-2018

PATIENT
  Age: 72 Year

DRUGS (8)
  1. CARVEDILOL. [Suspect]
     Active Substance: CARVEDILOL
     Indication: CARDIAC FAILURE
     Dosage: 6.25 MG, BID
     Route: 065
  2. AMLODIPINE-OLMESARTAN MEDOXOMIL [Suspect]
     Active Substance: AMLODIPINE BESYLATE\OLMESARTAN MEDOXOMIL
     Indication: CARDIAC FAILURE
     Dosage: 2 UNK, QD
     Route: 065
  3. PENNSAID [Suspect]
     Active Substance: DICLOFENAC SODIUM
     Indication: CARDIAC FAILURE
     Dosage: UNK
     Route: 065
  4. PENNSAID [Suspect]
     Active Substance: DICLOFENAC SODIUM
     Dosage: UNK
     Route: 065
  5. IRBESARTAN. [Suspect]
     Active Substance: IRBESARTAN
     Indication: CARDIAC FAILURE
     Dosage: 300 MG, QD
     Route: 065
  6. AMILORIDE-FUROSEMIDE [Suspect]
     Active Substance: AMILORIDE HYDROCHLORIDE\FUROSEMIDE
     Dosage: UNK
     Route: 065
  7. AMLODIPINE-OLMESARTAN MEDOXOMIL [Suspect]
     Active Substance: AMLODIPINE BESYLATE\OLMESARTAN MEDOXOMIL
     Dosage: UNK, QD
     Route: 065
  8. AMILORIDE-FUROSEMIDE [Suspect]
     Active Substance: AMILORIDE HYDROCHLORIDE\FUROSEMIDE
     Indication: CARDIAC FAILURE
     Dosage: 1 DF, BID
     Route: 065

REACTIONS (12)
  - Orthostatic hypotension [Recovered/Resolved]
  - Hyponatraemia [Recovered/Resolved]
  - Blood sodium increased [Unknown]
  - Electrocardiogram T wave abnormal [Unknown]
  - Product use in unapproved indication [Recovered/Resolved]
  - Blood creatinine increased [Unknown]
  - Hyperkalaemia [Recovered/Resolved]
  - Muscular weakness [Recovered/Resolved]
  - Labelled drug-drug interaction medication error [Recovered/Resolved]
  - Blood urea increased [Unknown]
  - Drug administration error [Unknown]
  - Renal impairment [Recovered/Resolved]
